FAERS Safety Report 24867989 (Version 1)
Quarter: 2025Q1

REPORT INFORMATION
  Report Type: Report from Study
  Country: CA (occurrence: CA)
  Receive Date: 20250121
  Receipt Date: 20250121
  Transmission Date: 20250408
  Serious: Yes (Other)
  Sender: ROCHE
  Company Number: CA-ROCHE-3121748

PATIENT
  Age: 42 Year
  Sex: Female

DRUGS (1)
  1. OCREVUS [Suspect]
     Active Substance: OCRELIZUMAB
     Indication: Relapsing-remitting multiple sclerosis
     Dosage: MORE DOSAGE INFORMATION IS 300 MG AT DAY 0 AND 14, THEN 600 MG EVERY 6 MONTH
     Route: 042
     Dates: start: 20210205

REACTIONS (14)
  - Fall [Unknown]
  - Arthropathy [Unknown]
  - Malaise [Recovered/Resolved]
  - Throat irritation [Recovered/Resolved]
  - Headache [Recovered/Resolved]
  - Insomnia [Recovered/Resolved]
  - Flushing [Unknown]
  - Facial spasm [Recovering/Resolving]
  - Stress [Not Recovered/Not Resolved]
  - Trigeminal neuralgia [Recovering/Resolving]
  - Multiple sclerosis [Not Recovered/Not Resolved]
  - Polycystic ovarian syndrome [Recovering/Resolving]
  - Limb injury [Recovered/Resolved with Sequelae]
  - COVID-19 [Not Recovered/Not Resolved]

NARRATIVE: CASE EVENT DATE: 20230228
